FAERS Safety Report 16835334 (Version 1)
Quarter: 2019Q3

REPORT INFORMATION
  Report Type: Spontaneous
  Country: US (occurrence: US)
  Receive Date: 20190920
  Receipt Date: 20190920
  Transmission Date: 20191005
  Serious: No
  Sender: FDA-Public Use
  Company Number: US-AMARIN PHARMA, INC.-2018AMR000275

PATIENT
  Age: 68 Year
  Sex: Female

DRUGS (2)
  1. OFEV [Suspect]
     Active Substance: NINTEDANIB
     Indication: IDIOPATHIC PULMONARY FIBROSIS
     Route: 048
     Dates: start: 20171231
  2. VASCEPA [Suspect]
     Active Substance: ICOSAPENT ETHYL
     Indication: PRODUCT USED FOR UNKNOWN INDICATION
     Route: 048
     Dates: start: 201808

REACTIONS (6)
  - Dyspnoea [Unknown]
  - Nausea [Not Recovered/Not Resolved]
  - Dyspnoea exertional [Unknown]
  - Hepatic enzyme increased [Unknown]
  - Productive cough [Unknown]
  - Dry throat [Unknown]

NARRATIVE: CASE EVENT DATE: 201808
